FAERS Safety Report 24279079 (Version 3)
Quarter: 2024Q3

REPORT INFORMATION
  Report Type: Spontaneous
  Country: US (occurrence: US)
  Receive Date: 20240903
  Receipt Date: 20240913
  Transmission Date: 20241016
  Serious: Yes (Other)
  Sender: KARYOPHARM THERAPEUTICS
  Company Number: US-KARYOPHARM-2024KPT001446

PATIENT

DRUGS (22)
  1. XPOVIO [Suspect]
     Active Substance: SELINEXOR
     Indication: Plasma cell myeloma
     Dosage: 100 MG, WEEKLY
     Route: 048
     Dates: start: 20240731, end: 2024
  2. ACETAMINOPHEN [Concomitant]
     Active Substance: ACETAMINOPHEN
  3. ACYCLOVIR [Concomitant]
     Active Substance: ACYCLOVIR
  4. ALPRAZOLAM [Concomitant]
     Active Substance: ALPRAZOLAM
  5. BUSPIRONE HCL [Concomitant]
     Active Substance: BUSPIRONE HYDROCHLORIDE
  6. CATHFLO ACTIVASE [Concomitant]
     Active Substance: ALTEPLASE
  7. DEXAMETHASONE [Concomitant]
     Active Substance: DEXAMETHASONE
  8. DIPHENHYDRAMINE [Concomitant]
     Active Substance: DIPHENHYDRAMINE
  9. ESCITALOPRAM OXALATE [Concomitant]
     Active Substance: ESCITALOPRAM OXALATE
  10. FAMOTIDINE [Concomitant]
     Active Substance: FAMOTIDINE
  11. HEPARIN [Concomitant]
     Active Substance: HEPARIN SODIUM
  12. LENALIDOMIDE [Concomitant]
     Active Substance: LENALIDOMIDE
  13. LISINOPRIL [Concomitant]
     Active Substance: LISINOPRIL
  14. LOPERAMIDE [Concomitant]
     Active Substance: LOPERAMIDE
  15. METOPROLOL SUCCINATE [Concomitant]
     Active Substance: METOPROLOL SUCCINATE
  16. MONTELUKAST SODIUM [Concomitant]
     Active Substance: MONTELUKAST\MONTELUKAST SODIUM
  17. OLANZAPINE [Concomitant]
     Active Substance: OLANZAPINE
  18. SULFAMETHOXAZOLE\TRIMETHOPRIM [Concomitant]
     Active Substance: SULFAMETHOXAZOLE\TRIMETHOPRIM
  19. VELCADE [Concomitant]
     Active Substance: BORTEZOMIB
  20. XARELTO [Concomitant]
     Active Substance: RIVAROXABAN
  21. ONDANSETRON HYDROCHLORIDE [Concomitant]
     Active Substance: ONDANSETRON HYDROCHLORIDE
  22. PROTONIX [Concomitant]
     Active Substance: PANTOPRAZOLE SODIUM

REACTIONS (12)
  - Cognitive disorder [Unknown]
  - Gastrooesophageal reflux disease [Unknown]
  - COVID-19 [Unknown]
  - Mania [Unknown]
  - Disturbance in attention [Unknown]
  - Attention deficit hyperactivity disorder [Recovered/Resolved]
  - Bipolar I disorder [Recovered/Resolved]
  - Abdominal distension [Not Recovered/Not Resolved]
  - Abdominal pain upper [Not Recovered/Not Resolved]
  - Night sweats [Not Recovered/Not Resolved]
  - Platelet count decreased [Not Recovered/Not Resolved]
  - Mental status changes [Recovered/Resolved]

NARRATIVE: CASE EVENT DATE: 20240101
